FAERS Safety Report 9325199 (Version 1)
Quarter: 2013Q2

REPORT INFORMATION
  Report Type: Spontaneous
  Country: GR (occurrence: GR)
  Receive Date: 20130604
  Receipt Date: 20130604
  Transmission Date: 20140414
  Serious: Yes (Death, Hospitalization, Other)
  Sender: FDA-Public Use
  Company Number: GR-AMGEN-GRCSP2013038901

PATIENT
  Age: 76 Year
  Sex: Female

DRUGS (1)
  1. ENBREL [Suspect]
     Indication: RHEUMATOID ARTHRITIS
     Dosage: 50 MG, WEEKLY
     Route: 065
     Dates: start: 200703, end: 201302

REACTIONS (5)
  - Pyrexia [Unknown]
  - Septic shock [Fatal]
  - Urinary tract infection [Unknown]
  - Tuberculosis [Unknown]
  - Pseudomonas infection [Not Recovered/Not Resolved]
